FAERS Safety Report 10355002 (Version 1)
Quarter: 2014Q3

REPORT INFORMATION
  Report Type: Spontaneous
  Country: IT (occurrence: IT)
  Receive Date: 20140731
  Receipt Date: 20140731
  Transmission Date: 20150326
  Serious: Yes (Hospitalization, Other)
  Sender: FDA-Public Use
  Company Number: PHHY2014IT092390

PATIENT
  Age: 15 Year
  Sex: Male

DRUGS (13)
  1. CLONAZEPAM. [Suspect]
     Active Substance: CLONAZEPAM
     Dosage: 0.6 MG,PER DAY
  2. AMITRIPTYLINE [Suspect]
     Active Substance: AMITRIPTYLINE
  3. DIAZEPAM. [Suspect]
     Active Substance: DIAZEPAM
  4. VALPROIC ACID. [Suspect]
     Active Substance: VALPROIC ACID
  5. RISPERIDONE. [Suspect]
     Active Substance: RISPERIDONE
  6. MIDAZOLAM [Suspect]
     Active Substance: MIDAZOLAM\MIDAZOLAM HYDROCHLORIDE
  7. TETRABENAZINE [Suspect]
     Active Substance: TETRABENAZINE
     Dosage: 12 MG,PER DAY
  8. THIOPENTONE [Suspect]
     Active Substance: THIOPENTAL SODIUM
  9. TIZANIDINE [Suspect]
     Active Substance: TIZANIDINE
     Dosage: 8 MG, PER DAY
  10. GABAPENTIN. [Suspect]
     Active Substance: GABAPENTIN
  11. PHENOBARBITAL. [Suspect]
     Active Substance: PHENOBARBITAL
     Dosage: 75 MG, PER DAY
  12. BACLOFEN. [Suspect]
     Active Substance: BACLOFEN
     Indication: DYSTONIA
     Dosage: 26 MG,PER DAY
     Route: 048
  13. NITRAZEPAM [Suspect]
     Active Substance: NITRAZEPAM
     Dosage: 10 MG, PER DAY

REACTIONS (14)
  - Traumatic amputation [Unknown]
  - No therapeutic response [Unknown]
  - Cerebral atrophy [Unknown]
  - Movement disorder [Unknown]
  - Discomfort [Unknown]
  - Pneumonia [Unknown]
  - Muscle spasms [Unknown]
  - Nuclear magnetic resonance imaging brain abnormal [Unknown]
  - Pain [Unknown]
  - Dystonia [Unknown]
  - Respiratory tract infection [Unknown]
  - Malnutrition [Unknown]
  - Mononucleosis syndrome [Unknown]
  - Oromandibular dystonia [Unknown]
